FAERS Safety Report 16446232 (Version 2)
Quarter: 2019Q2

REPORT INFORMATION
  Report Type: Spontaneous
  Country: US (occurrence: US)
  Receive Date: 20190618
  Receipt Date: 20190628
  Transmission Date: 20190711
  Serious: Yes (Other)
  Sender: FDA-Public Use
  Company Number: US-BIOMARINAP-US-2019-124159

PATIENT
  Sex: Female
  Weight: 43 kg

DRUGS (1)
  1. VIMIZIM [Suspect]
     Active Substance: ELOSULFASE ALFA
     Indication: PRODUCT USED FOR UNKNOWN INDICATION
     Dosage: 90 MILLIGRAM, QW
     Route: 042
     Dates: start: 201403

REACTIONS (4)
  - Seizure [Unknown]
  - Sinus congestion [Unknown]
  - Product dose omission [Unknown]
  - Cough [Unknown]
